FAERS Safety Report 4529864-8 (Version None)
Quarter: 2004Q4

REPORT INFORMATION
  Report Type: 
  Country: None (occurrence: None)
  Receive Date: 20041217
  Receipt Date: 20041207
  Transmission Date: 20050328
  Serious: Yes (Other)
  Sender: FDA-Public Use
  Company Number: US-JNJFOC-20041201940

PATIENT
  Sex: Female
  Weight: 63.5 kg

DRUGS (8)
  1. REMICADE [Suspect]
     Route: 042
  2. REMICADE [Suspect]
     Indication: RHEUMATOID ARTHRITIS
     Route: 042
  3. METHOTREXATE [Concomitant]
  4. CLARINEX [Concomitant]
  5. NASACORT [Concomitant]
  6. ALPHAGAN [Concomitant]
  7. XALATAN [Concomitant]
  8. LIPITOR [Concomitant]

REACTIONS (7)
  - BENIGN COLONIC NEOPLASM [None]
  - BLINDNESS UNILATERAL [None]
  - FATIGUE [None]
  - IRRITABILITY [None]
  - PAIN EXACERBATED [None]
  - RETINAL VEIN OCCLUSION [None]
  - SURGERY [None]
